FAERS Safety Report 8435795-3 (Version None)
Quarter: 2012Q2

REPORT INFORMATION
  Report Type: 
  Country: None (occurrence: None)
  Receive Date: 20120614
  Receipt Date: 20120604
  Transmission Date: 20120825
  Serious: Yes (Other)
  Sender: FDA-Public Use
  Company Number: JP-ELI_LILLY_AND_COMPANY-JP201204001861

PATIENT
  Age: 88 Year
  Sex: Female

DRUGS (11)
  1. PRECOAT [Concomitant]
  2. FERROUS CITRATE [Concomitant]
  3. NORVASC [Concomitant]
  4. FAMOTIDINE [Concomitant]
  5. DISOPYRAMIDE [Concomitant]
  6. LOSARTAN POTASSIUM AND HYDROCHLOROTHIAZIDE [Concomitant]
  7. ALINAMIN F [Concomitant]
  8. CELLKAM [Concomitant]
  9. EVISTA [Suspect]
     Dosage: 60 MG, QD
     Route: 048
     Dates: start: 20040526
  10. SUZUTOLON [Concomitant]
  11. INDOMETHACIN [Concomitant]

REACTIONS (1)
  - ANEURYSM [None]
